FAERS Safety Report 17517030 (Version 1)
Quarter: 2020Q1

REPORT INFORMATION
  Report Type: Spontaneous
  Country: US (occurrence: US)
  Receive Date: 20200307
  Receipt Date: 20200307
  Transmission Date: 20200409
  Serious: Yes (Hospitalization, Disabling)
  Sender: FDA-Public Use
  Company Number: None

PATIENT
  Age: 15 Year
  Sex: Male
  Weight: 63 kg

DRUGS (5)
  1. BUSPAR 10MG [Concomitant]
  2. LEXEPRO 20MG [Concomitant]
  3. TRAZADONE 100MG [Concomitant]
  4. ADDEROL 10MG [Concomitant]
  5. SINGULAIR [Suspect]
     Active Substance: MONTELUKAST SODIUM
     Indication: SEASONAL ALLERGY
     Dosage: ?          QUANTITY:1 TABLET(S);?
     Route: 048

REACTIONS (6)
  - Anxiety [None]
  - Depression [None]
  - Sleep disorder [None]
  - Suicidal ideation [None]
  - Attention deficit/hyperactivity disorder [None]
  - Suicide attempt [None]

NARRATIVE: CASE EVENT DATE: 20171218
